FAERS Safety Report 5669829-6 (Version None)
Quarter: 2008Q1

REPORT INFORMATION
  Report Type: 
  Country: None (occurrence: None)
  Receive Date: 20080317
  Receipt Date: 20080310
  Transmission Date: 20080703
  Serious: Yes (Hospitalization)
  Sender: FDA-Public Use
  Company Number: US-BAXTER-2008BH002176

PATIENT
  Age: 51 Year
  Sex: Male
  Weight: 220 kg

DRUGS (3)
  1. HEPARIN SODIUM [Suspect]
     Indication: THROMBOSIS PROPHYLAXIS
     Route: 058
     Dates: start: 20080123, end: 20080203
  2. HYDROCODONE BITARTRATE [Concomitant]
     Indication: PAIN IN EXTREMITY
     Dosage: DOSE UNIT:UNKNOWN
     Route: 048
  3. MORPHINE [Concomitant]
     Indication: PAIN IN EXTREMITY
     Route: 048

REACTIONS (4)
  - ABDOMINAL PAIN [None]
  - INJECTION SITE INDURATION [None]
  - PULMONARY EMBOLISM [None]
  - RASH [None]
